FAERS Safety Report 6702070-4 (Version None)
Quarter: 2010Q2

REPORT INFORMATION
  Report Type: 
  Country: None (occurrence: None)
  Receive Date: 20100427
  Receipt Date: 20100413
  Transmission Date: 20101027
  Serious: Yes (Hospitalization, Other)
  Sender: FDA-Public Use
  Company Number: 008409

PATIENT
  Age: 22 Year
  Sex: Female

DRUGS (7)
  1. GLYCOLAX [Suspect]
     Indication: CONSTIPATION
     Dosage: (17 G BID ORAL), (17 G TID ORAL)
     Route: 048
  2. LAXATIVES [Suspect]
     Indication: CONSTIPATION
     Dosage: (24 UG BID)
  3. ESOMEPRAZOLE [Concomitant]
  4. METHADONE HCL [Concomitant]
  5. IBUPROFEN [Concomitant]
  6. ESCITALOPRAM [Concomitant]
  7. CLONAZEPAM [Concomitant]

REACTIONS (4)
  - CONSTIPATION [None]
  - DISTAL INTESTINAL OBSTRUCTION SYNDROME [None]
  - MALNUTRITION [None]
  - TREATMENT NONCOMPLIANCE [None]
